FAERS Safety Report 8380539-7 (Version None)
Quarter: 2012Q2

REPORT INFORMATION
  Report Type: 
  Country: None (occurrence: None)
  Receive Date: 20120523
  Receipt Date: 20120514
  Transmission Date: 20120825
  Serious: Yes (Other)
  Sender: FDA-Public Use
  Company Number: US-ASTRAZENECA-2011SE66662

PATIENT
  Age: 73 Year
  Sex: Female
  Weight: 49.9 kg

DRUGS (2)
  1. ZANTAC [Concomitant]
  2. NEXIUM [Suspect]
     Route: 048

REACTIONS (7)
  - SQUAMOUS CELL CARCINOMA [None]
  - GASTRIC ULCER [None]
  - OESOPHAGEAL PAIN [None]
  - OESOPHAGEAL ULCER [None]
  - OESOPHAGEAL CARCINOMA [None]
  - HYPERCHLORHYDRIA [None]
  - OFF LABEL USE [None]
